FAERS Safety Report 4861097-8 (Version None)
Quarter: 2005Q4

REPORT INFORMATION
  Report Type: 
  Country: None (occurrence: None)
  Receive Date: 20051220
  Receipt Date: 20051213
  Transmission Date: 20060501
  Serious: Yes (Other)
  Sender: FDA-Public Use
  Company Number: HK-GLAXOSMITHKLINE-B0403754A

PATIENT
  Age: 29 Year
  Sex: Female
  Weight: 50.9 kg

DRUGS (1)
  1. ZINNAT [Suspect]
     Indication: INFECTION
     Dosage: 250MG TWICE PER DAY
     Route: 048
     Dates: start: 20051210, end: 20051210

REACTIONS (5)
  - ANAPHYLACTIC REACTION [None]
  - DYSPNOEA [None]
  - HYPERSENSITIVITY [None]
  - LARYNGEAL OEDEMA [None]
  - PHARYNGEAL OEDEMA [None]
